FAERS Safety Report 17997933 (Version 1)
Quarter: 2020Q3

REPORT INFORMATION
  Report Type: Spontaneous
  Country: CN (occurrence: CN)
  Receive Date: 20200709
  Receipt Date: 20200709
  Transmission Date: 20201103
  Serious: Yes (Hospitalization, Other)
  Sender: FDA-Public Use
  Company Number: CN-PFIZER INC-2020259875

PATIENT
  Age: 85 Year
  Sex: Male

DRUGS (1)
  1. CELEBREX [Suspect]
     Active Substance: CELECOXIB
     Dosage: 1 DF, 2X/DAY (MORNING AND EVENING)
     Route: 048
     Dates: start: 202006, end: 202006

REACTIONS (2)
  - Urine output decreased [Recovering/Resolving]
  - Urinary tract pain [Recovering/Resolving]

NARRATIVE: CASE EVENT DATE: 202006
